FAERS Safety Report 6612733-7 (Version None)
Quarter: 2010Q1

REPORT INFORMATION
  Report Type: 
  Country: None (occurrence: None)
  Receive Date: 20100223
  Receipt Date: 20100208
  Transmission Date: 20100710
  Serious: Yes (Hospitalization)
  Sender: FDA-Public Use
  Company Number: DSJ-2010-02168

PATIENT
  Age: 60 Year
  Sex: Female

DRUGS (6)
  1. AMLODIPINE BESYLATE AND OLMESARTAN MEDOXOMIL [Suspect]
     Indication: HYPERTENSION
     Dosage: 40/10 MG (2 IN 1 D), PER ORAL
     Route: 048
     Dates: start: 20081101, end: 20100201
  2. ACETYLSALICYLIC ACID [Concomitant]
  3. ATENOLOL [Concomitant]
  4. GLIMEPIRIDE [Concomitant]
  5. ALENDRONATE SODIUM [Concomitant]
  6. SODIUM BICARBONATE [Concomitant]

REACTIONS (3)
  - ARRHYTHMIA [None]
  - DRUG INEFFECTIVE [None]
  - OEDEMA PERIPHERAL [None]
